FAERS Safety Report 8957578 (Version 4)
Quarter: 2013Q1

REPORT INFORMATION
  Report Type: Spontaneous
  Country: BR (occurrence: BR)
  Receive Date: 20121210
  Receipt Date: 20130325
  Transmission Date: 20140127
  Serious: Yes (Other)
  Sender: FDA-Public Use
  Company Number: BR-PFIZER INC-2012142048

PATIENT
  Age: 71 Year
  Sex: Female
  Weight: 66 kg

DRUGS (5)
  1. LYRICA [Suspect]
     Indication: PAIN
     Dosage: 75 MG, 2X/DAY (ONE IN THE MORNING AND ONE AT NIGHT)
     Route: 048
     Dates: start: 201204, end: 201209
  2. LYRICA [Interacting]
     Dosage: 75 MG, 1X/DAY (IN THE MORNING)
     Dates: end: 201211
  3. CIPROFLOXACIN [Interacting]
     Indication: GASTROINTESTINAL INFLAMMATION
     Dosage: UNK
     Dates: start: 20121112, end: 20121115
  4. CIPROFLOXACIN [Interacting]
     Indication: GASTROINTESTINAL INFECTION
  5. NOVALGINA [Concomitant]
     Dosage: UNK

REACTIONS (18)
  - Gastrointestinal infection [Recovered/Resolved]
  - Drug interaction [Recovered/Resolved]
  - Feeling abnormal [Unknown]
  - Dizziness [Unknown]
  - Balance disorder [Unknown]
  - Pain [Unknown]
  - Depression [Recovered/Resolved]
  - Tachycardia [Unknown]
  - Feeling abnormal [Not Recovered/Not Resolved]
  - Malaise [Unknown]
  - Eating disorder [Recovered/Resolved]
  - Intentional drug misuse [Unknown]
  - Withdrawal syndrome [Unknown]
  - Presyncope [Recovered/Resolved]
  - Palpitations [Recovered/Resolved]
  - Fatigue [Recovered/Resolved]
  - Asthenia [Recovered/Resolved]
  - Nervousness [Recovered/Resolved]
